FAERS Safety Report 5394817-7 (Version None)
Quarter: 2007Q3

REPORT INFORMATION
  Report Type: 
  Country: None (occurrence: None)
  Receive Date: 20070720
  Receipt Date: 20070713
  Transmission Date: 20080115
  Serious: No
  Sender: FDA-Public Use
  Company Number: TAP2007Q00945

PATIENT
  Age: 62 Year
  Sex: Female
  Weight: 81.81 kg

DRUGS (4)
  1. PREVACID [Suspect]
     Indication: GASTROOESOPHAGEAL REFLUX DISEASE
     Dosage: 30 MG, 1 IN 1 D, ORAL
     Route: 048
     Dates: start: 19980101
  2. ESTRACE [Concomitant]
  3. ASPIRIN [Concomitant]
  4. LIPITOR [Concomitant]

REACTIONS (4)
  - CATARACT [None]
  - EYE PAIN [None]
  - GLAUCOMA [None]
  - VISION BLURRED [None]
